FAERS Safety Report 22103285 (Version 14)
Quarter: 2024Q1

REPORT INFORMATION
  Report Type: Spontaneous
  Country: IN (occurrence: IN)
  Receive Date: 20230316
  Receipt Date: 20240315
  Transmission Date: 20240410
  Serious: Yes (Other)
  Sender: FDA-Public Use
  Company Number: IN-PFIZER INC-PV202300047943

PATIENT
  Age: 64 Year
  Sex: Male
  Weight: 82 kg

DRUGS (13)
  1. LORLATINIB [Suspect]
     Active Substance: LORLATINIB
     Indication: Lung cancer metastatic
     Dosage: 100 MG, 1X/DAY
     Route: 048
     Dates: start: 20230218
  2. LORLATINIB [Suspect]
     Active Substance: LORLATINIB
     Dosage: 100 MG, 1X/DAY
     Route: 048
     Dates: start: 20230221
  3. LORLATINIB [Suspect]
     Active Substance: LORLATINIB
     Dosage: 100 MG, 1X/DAY
     Dates: start: 20230225
  4. LORLATINIB [Suspect]
     Active Substance: LORLATINIB
     Dosage: FOUR 25 MG TABLETS, 1X/DAY
     Route: 048
  5. LORLATINIB [Suspect]
     Active Substance: LORLATINIB
     Dosage: 75 MG (3 TABLETS OF 25MG)
     Route: 048
  6. LORLATINIB [Suspect]
     Active Substance: LORLATINIB
     Dosage: 100 MG, 1X/DAY OD (25MGX4)
  7. LORLATINIB [Suspect]
     Active Substance: LORLATINIB
     Dosage: 75 MG OD
     Route: 048
  8. ATORVASTATIN [Concomitant]
     Active Substance: ATORVASTATIN
     Indication: Blood cholesterol abnormal
     Dosage: 20 MG
     Dates: start: 20230220
  9. LEVERA [DACLATASVIR] [Concomitant]
     Dosage: 500 MG, 2X/DAY
     Dates: start: 20230220
  10. LEVERA [DACLATASVIR] [Concomitant]
     Dosage: 500 MG, 1X/DAY
  11. CALCIUM CARBONATE\CHOLECALCIFEROL [Concomitant]
     Active Substance: CALCIUM CARBONATE\CHOLECALCIFEROL
     Dosage: UNK
     Dates: start: 20230215
  12. CALCIUM CARBONATE\CHOLECALCIFEROL [Concomitant]
     Active Substance: CALCIUM CARBONATE\CHOLECALCIFEROL
     Dosage: 500 MG
     Dates: start: 20230220
  13. DEXAMETHASONE [Concomitant]
     Active Substance: DEXAMETHASONE
     Dosage: 2 MG
     Dates: start: 20230220

REACTIONS (15)
  - Electrocardiogram QT prolonged [Unknown]
  - Brain oedema [Recovered/Resolved]
  - Haemoglobin decreased [Unknown]
  - Platelet count decreased [Not Recovered/Not Resolved]
  - Low density lipoprotein increased [Not Recovered/Not Resolved]
  - Peripheral swelling [Recovering/Resolving]
  - Swelling face [Recovering/Resolving]
  - Fluid retention [Recovering/Resolving]
  - Oedema peripheral [Unknown]
  - Generalised oedema [Unknown]
  - Glycosylated haemoglobin increased [Unknown]
  - Chest X-ray abnormal [Unknown]
  - Full blood count abnormal [Unknown]
  - Mean cell volume decreased [Unknown]
  - Lymphadenopathy mediastinal [Unknown]

NARRATIVE: CASE EVENT DATE: 20230101
